FAERS Safety Report 12486999 (Version 1)
Quarter: 2016Q2

REPORT INFORMATION
  Report Type: Spontaneous
  Country: GB (occurrence: None)
  Receive Date: 20160621
  Receipt Date: 20160621
  Transmission Date: 20160815
  Serious: No
  Sender: FDA-Public Use
  Company Number: None

PATIENT
  Age: 34 Year
  Sex: Female
  Weight: 160 kg

DRUGS (1)
  1. NEXPLANON [Suspect]
     Active Substance: ETONOGESTREL
     Indication: CONTRACEPTION
     Dosage: LAST 3 YRS IMPLANT
     Dates: start: 20150210, end: 20151019

REACTIONS (7)
  - Anxiety [None]
  - Anger [None]
  - Psychotic disorder [None]
  - Violence-related symptom [None]
  - Depression [None]
  - Self-injurious ideation [None]
  - Abnormal behaviour [None]

NARRATIVE: CASE EVENT DATE: 20151005
